FAERS Safety Report 18855050 (Version 8)
Quarter: 2021Q2

REPORT INFORMATION
  Report Type: Spontaneous
  Country: GB (occurrence: GB)
  Receive Date: 20210205
  Receipt Date: 20210622
  Transmission Date: 20210717
  Serious: Yes (Death, Other)
  Sender: FDA-Public Use
  Company Number: GB-TEVA-2021-GB-1874445

PATIENT
  Sex: Male

DRUGS (16)
  1. ENTACAPONE. [Suspect]
     Active Substance: ENTACAPONE
     Indication: PRODUCT USED FOR UNKNOWN INDICATION
     Dosage: UNKNOWN
     Route: 065
  2. ALLOPURINOL. [Suspect]
     Active Substance: ALLOPURINOL
     Indication: PRODUCT USED FOR UNKNOWN INDICATION
     Dosage: UNK,QD
  3. MIRTAZAPINE. [Suspect]
     Active Substance: MIRTAZAPINE
     Indication: PRODUCT USED FOR UNKNOWN INDICATION
     Dosage: 15 MILLIGRAM DAILY;
     Route: 065
  4. LAXIDO [Suspect]
     Active Substance: POLYETHYLENE GLYCOL 3350\POTASSIUM CHLORIDE\SODIUM BICARBONATE\SODIUM CHLORIDE
     Indication: PRODUCT USED FOR UNKNOWN INDICATION
     Dosage: 2 DOSAGE FORMS DAILY;
     Route: 065
  5. ONGENTYS [Suspect]
     Active Substance: OPICAPONE
     Indication: PARKINSON^S DISEASE
     Dosage: 50 MILLIGRAM DAILY; 50 MILLIGRAM, 1X / DAY (30 MINS PRE/POST EVENING LEVODOPA)
     Route: 065
     Dates: start: 2020
  6. SENNA [Suspect]
     Active Substance: SENNA LEAF\SENNOSIDES\SENNOSIDES A AND B
     Indication: PRODUCT USED FOR UNKNOWN INDICATION
     Dosage: 7.5 MILLIGRAM DAILY;
     Route: 065
  7. TAMSULOSIN [Suspect]
     Active Substance: TAMSULOSIN
     Indication: PRODUCT USED FOR UNKNOWN INDICATION
     Dosage: 400 MICROGRAM DAILY;
     Route: 065
  8. COCODAMOL [Suspect]
     Active Substance: ACETAMINOPHEN\CODEINE PHOSPHATE
     Indication: PRODUCT USED FOR UNKNOWN INDICATION
     Dosage: (2 DF, 15MG/500MG, 2 TABLETS EVERY 6 HRS AS REQUIRED)
     Route: 065
  9. LEVOTHYROXINE SODIUM. [Suspect]
     Active Substance: LEVOTHYROXINE SODIUM
     Dosage: 50 MICROGRAM DAILY; 50 MICROGRAM, 1X / DAY
     Route: 065
  10. ENTACAPONE. [Concomitant]
     Active Substance: ENTACAPONE
  11. GABAPENTIN. [Suspect]
     Active Substance: GABAPENTIN
     Indication: PRODUCT USED FOR UNKNOWN INDICATION
     Dosage: 1800 MILLIGRAM DAILY;
  12. ADCAL?D3 [Suspect]
     Active Substance: CALCIUM CARBONATE\CHOLECALCIFEROL
     Indication: PRODUCT USED FOR UNKNOWN INDICATION
     Dosage: 2 DOSAGE FORMS DAILY; 1 DF, Q12H ((1.5 G + 400 UNITS, 2X / DAY)
     Route: 065
  13. ALLOPURINOL. [Suspect]
     Active Substance: ALLOPURINOL
     Dosage: 300 MILLIGRAM DAILY; 300 MG, QD (300 MG, 1X/DAY (FREQ:24 H;300 MILLIGRAM, 1X / DAY)
     Route: 065
  14. CO?CARELDOPA [Suspect]
     Active Substance: CARBIDOPA\LEVODOPA
     Indication: PRODUCT USED FOR UNKNOWN INDICATION
     Dosage: 4 DOSAGE FORMS DAILY; 25/100 MG AND 12.5/50 MG(AT 8 AM, 12 PM,4 PM, 8 PM), 1 DOSAGE FORM
     Route: 065
  15. COLECALCIFEROL [Suspect]
     Active Substance: CHOLECALCIFEROL
     Indication: PRODUCT USED FOR UNKNOWN INDICATION
     Dosage: 800 IU (INTERNATIONAL UNIT) DAILY;
     Route: 065
  16. LEVOTHYROXINE SODIUM. [Suspect]
     Active Substance: LEVOTHYROXINE SODIUM
     Indication: PRODUCT USED FOR UNKNOWN INDICATION
     Dosage: 25 MICROGRAM DAILY; 25 MICROGRAM, 1X / DAY
     Route: 065

REACTIONS (13)
  - Urinary retention [Recovered/Resolved]
  - Agitation [Recovered/Resolved]
  - Hyponatraemia [Recovered/Resolved]
  - Upper limb fracture [Unknown]
  - Dyskinesia [Unknown]
  - Off label use [Unknown]
  - Treatment noncompliance [Unknown]
  - Death [Fatal]
  - Confusional state [Recovered/Resolved]
  - Orthostatic hypotension [Unknown]
  - Contraindicated product administered [Unknown]
  - Joint dislocation [Unknown]
  - Fall [Unknown]

NARRATIVE: CASE EVENT DATE: 2020
